FAERS Safety Report 9353058 (Version 1)
Quarter: 2013Q2

REPORT INFORMATION
  Report Type: Spontaneous
  Country: US (occurrence: None)
  Receive Date: 20130612
  Receipt Date: 20130612
  Transmission Date: 20140414
  Serious: Yes (Death)
  Sender: FDA-Public Use
  Company Number: PR-AE13-000356

PATIENT
  Sex: Male

DRUGS (1)
  1. ECOTRIN (ASPIRIN, STRENGTH UNSPECIFIED) [Suspect]
     Route: 048
     Dates: end: 1993

REACTIONS (6)
  - Gastritis [None]
  - Abdominal pain upper [None]
  - Vomiting [None]
  - Gastric haemorrhage [None]
  - Burning sensation [None]
  - Myocardial infarction [None]
